FAERS Safety Report 10459802 (Version 1)
Quarter: 2014Q3

REPORT INFORMATION
  Report Type: Spontaneous
  Country: US (occurrence: US)
  Receive Date: 20140917
  Receipt Date: 20140917
  Transmission Date: 20150326
  Serious: Yes (Other)
  Sender: FDA-Public Use
  Company Number: US-NOVEN-14US010299

PATIENT
  Age: 50 Year
  Sex: Female

DRUGS (1)
  1. PAROXETINE [Suspect]
     Active Substance: PAROXETINE\PAROXETINE HYDROCHLORIDE
     Indication: POST-TRAUMATIC STRESS DISORDER

REACTIONS (12)
  - Suicidal ideation [Recovered/Resolved]
  - Asthenia [Recovered/Resolved]
  - Somnolence [None]
  - Constipation [Recovered/Resolved]
  - Inappropriate schedule of drug administration [None]
  - Wrong technique in drug usage process [None]
  - Weight increased [Recovered/Resolved]
  - Condition aggravated [Recovered/Resolved]
  - Homicidal ideation [Recovered/Resolved]
  - Post-traumatic stress disorder [Recovered/Resolved]
  - Libido decreased [Recovered/Resolved]
  - Tachycardia [None]
